FAERS Safety Report 6200134-5 (Version None)
Quarter: 2009Q2

REPORT INFORMATION
  Report Type: 
  Country: None (occurrence: None)
  Receive Date: 20090522
  Receipt Date: 20090515
  Transmission Date: 20091009
  Serious: Yes (Death)
  Sender: FDA-Public Use
  Company Number: ZA-BAXTER-2009BH008767

PATIENT
  Age: 5 Year
  Sex: Female

DRUGS (4)
  1. CYCLOPHOSPHAMIDE [Suspect]
     Indication: BURKITT'S LYMPHOMA
     Route: 042
  2. METHOTREXATE [Suspect]
     Indication: BURKITT'S LYMPHOMA
     Route: 037
  3. HYDROCORTISONE [Concomitant]
     Indication: BURKITT'S LYMPHOMA
     Route: 037
  4. METOCLOPRAMIDE [Concomitant]
     Indication: VOMITING
     Route: 048

REACTIONS (1)
  - CARDIO-RESPIRATORY ARREST [None]
